FAERS Safety Report 8180257-4 (Version None)
Quarter: 2012Q1

REPORT INFORMATION
  Report Type: 
  Country: None (occurrence: None)
  Receive Date: 20120302
  Receipt Date: 20110321
  Transmission Date: 20120608
  Serious: No
  Sender: FDA-Public Use
  Company Number: US-GLAXOSMITHKLINE-A0919238A

PATIENT
  Age: 68 Year
  Sex: Female

DRUGS (2)
  1. CLOBETASOL PROPIONATE [Suspect]
     Indication: PSORIASIS
     Dosage: 1APP TWICE PER DAY
     Route: 061
     Dates: start: 20110318, end: 20110321
  2. NO CONCURRENT MEDICATION [Concomitant]

REACTIONS (4)
  - DRY SKIN [None]
  - LOCAL SWELLING [None]
  - BLISTER [None]
  - SKIN CHAPPED [None]
